FAERS Safety Report 7466995-7 (Version None)
Quarter: 2011Q2

REPORT INFORMATION
  Report Type: 
  Country: None (occurrence: None)
  Receive Date: 20110505
  Receipt Date: 20110505
  Transmission Date: 20111010
  Serious: Yes (Hospitalization)
  Sender: FDA-Public Use
  Company Number: None

PATIENT
  Age: 51 Year
  Sex: Male
  Weight: 70 kg

DRUGS (1)
  1. ASPIRIN [Suspect]
     Indication: PAIN
     Dosage: 975 MG ONCE PO
     Route: 048
     Dates: start: 20110321, end: 20110324

REACTIONS (4)
  - GASTRIC ULCER [None]
  - DIZZINESS [None]
  - ANAEMIA [None]
  - GASTRIC HAEMORRHAGE [None]
